FAERS Safety Report 14656904 (Version 1)
Quarter: 2018Q1

REPORT INFORMATION
  Report Type: Spontaneous
  Country: US (occurrence: US)
  Receive Date: 20180319
  Receipt Date: 20180319
  Transmission Date: 20180509
  Serious: Yes (Hospitalization, Other)
  Sender: FDA-Public Use
  Company Number: US-SA-2017SA134285

PATIENT
  Age: 7 Month
  Sex: Male

DRUGS (1)
  1. TRIAMCINOLONE ACETONIDE. [Suspect]
     Active Substance: TRIAMCINOLONE ACETONIDE
     Indication: DERMATITIS ATOPIC
     Route: 061

REACTIONS (12)
  - Dermatitis exfoliative generalised [Recovering/Resolving]
  - Failure to thrive [Recovering/Resolving]
  - Sepsis [Recovering/Resolving]
  - Dermatitis atopic [Recovering/Resolving]
  - Erythrodermic psoriasis [Recovering/Resolving]
  - Multiple sclerosis relapse [Recovering/Resolving]
  - Gastroenteritis eosinophilic [Recovering/Resolving]
  - Steroid withdrawal syndrome [Recovering/Resolving]
  - Skin plaque [Recovering/Resolving]
  - Staphylococcal bacteraemia [Recovering/Resolving]
  - Hypoproteinaemia [Unknown]
  - Hypoalbuminaemia [Recovering/Resolving]
